FAERS Safety Report 4921519-0 (Version None)
Quarter: 2006Q1

REPORT INFORMATION
  Report Type: 
  Country: None (occurrence: None)
  Receive Date: 20060224
  Receipt Date: 20060120
  Transmission Date: 20060701
  Serious: No
  Sender: FDA-Public Use
  Company Number: PHEH2006US01221

PATIENT
  Age: 13 Year
  Sex: Female
  Weight: 49.886 kg

DRUGS (3)
  1. ELIDEL [Suspect]
     Indication: ECZEMA
     Dosage: ABOUT 3 TIMES PER WEEK
     Route: 061
     Dates: start: 20050901, end: 20051201
  2. ELOCON [Concomitant]
  3. BENZACLIN [Concomitant]
     Indication: ACNE
     Dosage: UNK, BID
     Route: 061
     Dates: start: 20050901, end: 20051201

REACTIONS (2)
  - MELANOCYTIC NAEVUS [None]
  - MOLE EXCISION [None]
